FAERS Safety Report 20039072 (Version 1)
Quarter: 2021Q4

REPORT INFORMATION
  Report Type: Spontaneous
  Country: US (occurrence: US)
  Receive Date: 20211105
  Receipt Date: 20211105
  Transmission Date: 20220303
  Serious: Yes (Other)
  Sender: FDA-Public Use
  Company Number: US-PFIZER INC-202101468260

PATIENT
  Age: 60 Year
  Sex: Female
  Weight: 77.11 kg

DRUGS (1)
  1. LYRICA [Suspect]
     Active Substance: PREGABALIN
     Dosage: 300 MG, 2X/DAY (300MG TWICE A DAY MORNING AND NIGHT)
     Dates: end: 2021

REACTIONS (9)
  - Myocardial infarction [Unknown]
  - Neuropathy peripheral [Unknown]
  - Oedema [Unknown]
  - Peripheral swelling [Unknown]
  - Skin discolouration [Unknown]
  - Cardiovascular disorder [Unknown]
  - Peripheral venous disease [Recovered/Resolved]
  - Poor peripheral circulation [Unknown]
  - Body height decreased [Unknown]

NARRATIVE: CASE EVENT DATE: 20190101
